FAERS Safety Report 6006340-7 (Version None)
Quarter: 2008Q4

REPORT INFORMATION
  Report Type: 
  Country: None (occurrence: None)
  Receive Date: 20081216
  Receipt Date: 20081216
  Transmission Date: 20090506
  Serious: Yes (Hospitalization)
  Sender: FDA-Public Use
  Company Number: None

PATIENT
  Age: 66 Year
  Sex: Male

DRUGS (1)
  1. METRONIDAZOLE [Suspect]
     Indication: DIARRHOEA INFECTIOUS
     Dosage: 500 MG TID PO
     Route: 048
     Dates: end: 20081124

REACTIONS (6)
  - DRUG INEFFECTIVE [None]
  - ERYTHEMA [None]
  - MALAISE [None]
  - PRURITUS [None]
  - RASH GENERALISED [None]
  - URTICARIA [None]
